FAERS Safety Report 7742960-7 (Version None)
Quarter: 2011Q3

REPORT INFORMATION
  Report Type: 
  Country: None (occurrence: None)
  Receive Date: 20110912
  Receipt Date: 20110901
  Transmission Date: 20111222
  Serious: Yes (Other)
  Sender: FDA-Public Use
  Company Number: US-UCBSA-040586

PATIENT
  Sex: Female

DRUGS (9)
  1. PENTASA [Concomitant]
     Indication: CROHN'S DISEASE
     Dosage: 8 TABLETS A DAY
     Route: 048
     Dates: start: 20080101
  2. SYNTHROID [Concomitant]
     Indication: HYPOTHYROIDISM
     Route: 048
     Dates: start: 20080101
  3. PRADIN [Concomitant]
     Indication: DIABETES MELLITUS
     Dosage: 3 TIMES DAILY, VARIES DEPENDS ON HOW MANY CARBS SHE EATS
     Route: 048
     Dates: start: 20080101
  4. TRILIPIX [Concomitant]
     Indication: BLOOD TRIGLYCERIDES INCREASED
     Route: 048
     Dates: start: 20090101
  5. JANUVIA [Concomitant]
     Indication: DIABETES MELLITUS
     Route: 048
     Dates: start: 20070101
  6. CIMZIA [Suspect]
     Indication: CROHN'S DISEASE
     Route: 058
  7. SYMBICORT [Concomitant]
     Indication: ASTHMA
     Dosage: 2 PUFFS ONCE A DAY
     Route: 055
     Dates: start: 20110601
  8. EFFEXOR [Concomitant]
     Indication: DEPRESSION
     Route: 048
     Dates: start: 20050101
  9. ALTACE [Concomitant]
     Indication: HYPERTENSION
     Route: 048
     Dates: start: 20080101

REACTIONS (1)
  - PSORIASIS [None]
